FAERS Safety Report 10146578 (Version 2)
Quarter: 2014Q2

REPORT INFORMATION
  Report Type: Report from Study
  Country: US (occurrence: US)
  Receive Date: 20140501
  Receipt Date: 20140508
  Transmission Date: 20141212
  Serious: Yes (Other)
  Sender: FDA-Public Use
  Company Number: US-BAXTER-2014BAX021042

PATIENT
  Age: 65 Year
  Sex: Female
  Weight: 90.98 kg

DRUGS (6)
  1. ARALAST NP [Suspect]
     Indication: ALPHA-1 ANTI-TRYPSIN DEFICIENCY
     Route: 042
     Dates: start: 2007
  2. EFFEXOR [Concomitant]
     Indication: DEPRESSION
     Route: 048
     Dates: start: 1993
  3. COUMADIN [Concomitant]
     Indication: CEREBRAL ISCHAEMIA
     Route: 048
     Dates: start: 2006
  4. COUMADIN [Concomitant]
     Indication: FACTOR V LEIDEN MUTATION
  5. COUMADIN [Concomitant]
     Indication: METHYLENETETRAHYDROFOLATE REDUCTASE DEFICIENCY
  6. COUMADIN [Concomitant]
     Indication: ACTIVATED PROTEIN C RESISTANCE

REACTIONS (3)
  - Phlebitis [Recovering/Resolving]
  - Procedural complication [Unknown]
  - Poor venous access [Unknown]
